FAERS Safety Report 9694560 (Version 1)
Quarter: 2013Q4

REPORT INFORMATION
  Report Type: Report from Study
  Country: US (occurrence: US)
  Receive Date: 20131118
  Receipt Date: 20131118
  Transmission Date: 20140711
  Serious: Yes (Other)
  Sender: FDA-Public Use
  Company Number: US-ROCHE-1301867

PATIENT
  Sex: Female

DRUGS (1)
  1. ERIVEDGE [Suspect]
     Indication: OESOPHAGEAL CANCER METASTATIC
     Route: 065

REACTIONS (3)
  - Bone marrow failure [Unknown]
  - Neuropathy peripheral [Unknown]
  - Off label use [Unknown]
